FAERS Safety Report 7599182-2 (Version None)
Quarter: 2011Q3

REPORT INFORMATION
  Report Type: 
  Country: None (occurrence: None)
  Receive Date: 20110711
  Receipt Date: 20110629
  Transmission Date: 20111222
  Serious: Yes (Death, Other)
  Sender: FDA-Public Use
  Company Number: JP-BAYER-201015054BYL

PATIENT
  Age: 64 Year
  Sex: Male
  Weight: 62.4 kg

DRUGS (12)
  1. BARACLUDE [Concomitant]
     Dosage: SINCE BEFORE ADMINISTRATION
     Route: 048
  2. LASIX [Concomitant]
     Dosage: DAILY DOSE 20 MG
     Route: 048
     Dates: start: 20100803
  3. KETOPROFEN [Concomitant]
     Dosage: SINCE BEFORE ADMINISTRATION
     Route: 023
  4. NEXAVAR [Suspect]
     Indication: HEPATIC NEOPLASM MALIGNANT
     Dosage: DAILY DOSE 800 MG
     Route: 048
     Dates: start: 20090806, end: 20100706
  5. TICLOPIDINE HCL [Concomitant]
     Dosage: SINCE BEFORE ADMINISTRATION
     Route: 048
  6. UREPEARL [Concomitant]
     Indication: PROPHYLAXIS
     Route: 061
     Dates: start: 20090806
  7. ZOMETA [Concomitant]
     Dosage: 4 MG (DAILY DOSE), , INTRAVENOUS
     Route: 042
     Dates: start: 20100309
  8. LASIX [Concomitant]
     Dosage: DAILY DOSE 40 MG
     Route: 048
     Dates: start: 20100601
  9. RABEPRAZOLE SODIUM [Concomitant]
     Indication: PROPHYLAXIS AGAINST GASTROINTESTINAL ULCER
     Dosage: 10 MG (DAILY DOSE), , ORAL
     Route: 048
     Dates: start: 20100601
  10. WARFARIN SODIUM [Concomitant]
     Dosage: 2 MG (DAILY DOSE), , ORAL
     Route: 048
     Dates: start: 20090811
  11. LASIX [Concomitant]
     Dosage: DAILY DOSE 20 MG
     Route: 048
  12. WARFARIN SODIUM [Concomitant]
     Dosage: SINCE BEFORE ADMINISTRATION
     Route: 048
     Dates: end: 20090810

REACTIONS (10)
  - HEPATIC NEOPLASM MALIGNANT [None]
  - HEPATIC HYDROTHORAX [None]
  - MELAENA [None]
  - HYPERTENSION [None]
  - HEPATIC ENCEPHALOPATHY [None]
  - PROTHROMBIN LEVEL DECREASED [None]
  - ANAEMIA [None]
  - CANCER PAIN [None]
  - OEDEMA PERIPHERAL [None]
  - CARDIAC FAILURE CONGESTIVE [None]
